FAERS Safety Report 6260119-X (Version None)
Quarter: 2009Q3

REPORT INFORMATION
  Report Type: 
  Country: None (occurrence: None)
  Receive Date: 20090708
  Receipt Date: 20090629
  Transmission Date: 20100115
  Serious: Yes (Hospitalization)
  Sender: FDA-Public Use
  Company Number: US-ELI_LILLY_AND_COMPANY-US200903003065

PATIENT
  Sex: Female
  Weight: 71.202 kg

DRUGS (14)
  1. BYETTA [Suspect]
     Indication: TYPE 2 DIABETES MELLITUS
     Dosage: 5 UG, 2/D
     Route: 058
     Dates: start: 20050101, end: 20050101
  2. BYETTA [Suspect]
     Dosage: 10 UG, 2/D
     Route: 058
     Dates: start: 20050101, end: 20090201
  3. GLUCOPHAGE [Concomitant]
     Indication: TYPE 2 DIABETES MELLITUS
     Dosage: 850 MG, 2/D
  4. DILTIAZEM [Concomitant]
     Indication: BLOOD PRESSURE INCREASED
     Dosage: 300 MG, DAILY (1/D)
  5. VYTORIN [Concomitant]
     Indication: BLOOD CHOLESTEROL
     Dosage: 10 MG, DAILY (1/D)
  6. TIMOPTIC [Concomitant]
     Indication: GLAUCOMA
     Dosage: 1 GTT, 2/D
  7. LASIX [Concomitant]
     Dosage: 40 MG, 2/D
  8. NEURONTIN [Concomitant]
     Indication: ARTHRITIS
     Dosage: 100 MG, 2/D
  9. ASPIRIN [Concomitant]
     Dosage: 81 MG, DAILY (1/D)
  10. ZOLOFT [Concomitant]
     Indication: DEPRESSION
     Dosage: 50 MG, DAILY (1/D)
  11. AMBIEN CR [Concomitant]
     Indication: INSOMNIA
     Dosage: 6.25 MG, DAILY (1/D)
  12. PRILOSEC [Concomitant]
     Indication: GASTROOESOPHAGEAL REFLUX DISEASE
     Dosage: 40 MG, DAILY (1/D)
  13. METRONIDAZOLE [Concomitant]
     Dosage: 250 MG, 3/D
     Route: 048
  14. JANUVIA [Concomitant]
     Dosage: 100 MG, DAILY (1/D)
     Route: 048

REACTIONS (10)
  - ANORECTAL DISORDER [None]
  - ASTHENIA [None]
  - BLOOD GLUCOSE DECREASED [None]
  - DIARRHOEA [None]
  - FAECAL INCONTINENCE [None]
  - INCONTINENCE [None]
  - LIPASE INCREASED [None]
  - PANCREATITIS [None]
  - VOMITING [None]
  - WEIGHT DECREASED [None]
